FAERS Safety Report 5957582-8 (Version None)
Quarter: 2008Q4

REPORT INFORMATION
  Report Type: 
  Country: None (occurrence: None)
  Receive Date: 20081117
  Receipt Date: 20081117
  Transmission Date: 20090506
  Serious: No
  Sender: FDA-Public Use
  Company Number: None

PATIENT
  Age: 44 Year
  Sex: Male
  Weight: 102.9665 kg

DRUGS (9)
  1. DESIPRAMINE HCL [Suspect]
     Indication: DEPRESSION
     Dosage: 50MG HS X 14 DAYS THEN 100MG HS
     Dates: start: 20080815, end: 20080827
  2. DESIPRAMINE HCL [Suspect]
     Indication: PSYCHOTIC DISORDER
     Dosage: 50MG HS X 14 DAYS THEN 100MG HS
     Dates: start: 20080815, end: 20080827
  3. DESIPRAMINE HCL [Suspect]
     Indication: DEPRESSION
     Dosage: 50MG HS X 14 DAYS THEN 100MG HS
     Dates: start: 20080828
  4. DESIPRAMINE HCL [Suspect]
     Indication: PSYCHOTIC DISORDER
     Dosage: 50MG HS X 14 DAYS THEN 100MG HS
     Dates: start: 20080828
  5. DESIPRAMINE HCL [Suspect]
     Indication: DEPRESSION
     Dosage: 50MG HS X 14 DAYS THEN 100MG HS
     Dates: start: 20080829
  6. DESIPRAMINE HCL [Suspect]
     Indication: PSYCHOTIC DISORDER
     Dosage: 50MG HS X 14 DAYS THEN 100MG HS
     Dates: start: 20080829
  7. IBUPROFEN TABLETS [Concomitant]
  8. SIMVASTATIN [Concomitant]
  9. ACYCLOVIR [Concomitant]

REACTIONS (1)
  - RASH GENERALISED [None]
